FAERS Safety Report 5570029-9 (Version None)
Quarter: 2007Q4

REPORT INFORMATION
  Report Type: 
  Country: None (occurrence: None)
  Receive Date: 20071220
  Receipt Date: 20071211
  Transmission Date: 20080405
  Serious: Yes (Other)
  Sender: FDA-Public Use
  Company Number: US-PFIZER INC-2007104684

PATIENT
  Sex: Male
  Weight: 93 kg

DRUGS (1)
  1. VIAGRA [Suspect]
     Indication: OVERWEIGHT
     Dates: start: 19990101, end: 20070101

REACTIONS (2)
  - BLINDNESS [None]
  - HEADACHE [None]
